FAERS Safety Report 4509419-1 (Version None)
Quarter: 2004Q4

REPORT INFORMATION
  Report Type: 
  Country: None (occurrence: None)
  Receive Date: 20041025
  Receipt Date: 20040727
  Transmission Date: 20050328
  Serious: Yes (Hospitalization)
  Sender: FDA-Public Use
  Company Number: US-JNJFOC-20040703468

PATIENT
  Age: 22 Year
  Sex: Female
  Weight: 51.2565 kg

DRUGS (8)
  1. INFLIXIMAB (INFLIXIMAB, RECOMBINANT) LYOPHILIZED POWDER [Suspect]
     Indication: CROHN'S DISEASE
     Dosage: 5 MG/KG, INTRAVENOUS
     Route: 042
     Dates: start: 20020812
  2. MERCAPTOPURINE [Suspect]
     Indication: CROHN'S DISEASE
  3. AZATHIOPRINE [Concomitant]
  4. METHOTREXATE SODIUM [Concomitant]
  5. ANTIBIOTICS (ANTIBIOTICS) [Concomitant]
  6. ANTISPASMOTICS (ANTISPASMOTICS; ANTICHOLINERGICS) [Concomitant]
  7. NARCOTIC ANALGESICS (ANALGESICS) [Concomitant]
  8. LOPERAMIDE HCL [Concomitant]

REACTIONS (3)
  - ENZYME ABNORMALITY [None]
  - ILEAL PERFORATION [None]
  - PERITONITIS [None]
